FAERS Safety Report 20861158 (Version 2)
Quarter: 2022Q3

REPORT INFORMATION
  Report Type: Spontaneous
  Country: JP (occurrence: JP)
  Receive Date: 20220523
  Receipt Date: 20220707
  Transmission Date: 20221027
  Serious: No
  Sender: FDA-Public Use
  Company Number: JP-ELI_LILLY_AND_COMPANY-JP202203008027AA

PATIENT
  Age: 76 Year
  Sex: Male

DRUGS (10)
  1. RETEVMO [Suspect]
     Active Substance: SELPERCATINIB
     Indication: Non-small cell lung cancer
     Dosage: 80 MG, BID
     Route: 048
     Dates: start: 20220301, end: 20220312
  2. VONOPRAZAN FUMARATE [Concomitant]
     Active Substance: VONOPRAZAN FUMARATE
  3. PITAVASTATIN CALCIUM [Concomitant]
     Active Substance: PITAVASTATIN CALCIUM
  4. PREGABALIN [Concomitant]
     Active Substance: PREGABALIN
  5. TULOBUTEROL [Concomitant]
     Active Substance: TULOBUTEROL
  6. SENNOSIDE A [Concomitant]
     Active Substance: SENNOSIDE A
  7. ACETAMINOPHEN [Concomitant]
     Active Substance: ACETAMINOPHEN
  8. AMBROXOL HYDROCHLORIDE [Concomitant]
     Active Substance: AMBROXOL HYDROCHLORIDE
  9. MAGNESIUM OXIDE [Concomitant]
     Active Substance: MAGNESIUM OXIDE
  10. LINZESS [Concomitant]
     Active Substance: LINACLOTIDE

REACTIONS (2)
  - Thrombophlebitis migrans [Recovered/Resolved]
  - Electrocardiogram QT prolonged [Recovered/Resolved]

NARRATIVE: CASE EVENT DATE: 20220312
